FAERS Safety Report 15830411 (Version 1)
Quarter: 2019Q1

REPORT INFORMATION
  Report Type: Spontaneous
  Country: IT (occurrence: IT)
  Receive Date: 20190115
  Receipt Date: 20190115
  Transmission Date: 20190417
  Serious: Yes (Hospitalization)
  Sender: FDA-Public Use
  Company Number: IT-LANNETT COMPANY, INC.-IT-2019LAN000060

PATIENT

DRUGS (7)
  1. VINCRISTINE [Suspect]
     Active Substance: VINCRISTINE
     Indication: EWING^S SARCOMA METASTATIC
     Dosage: UNK
     Route: 065
     Dates: start: 2012
  2. IFOSFAMIDE. [Suspect]
     Active Substance: IFOSFAMIDE
     Indication: EWING^S SARCOMA METASTATIC
     Dosage: 3 G/M2/ DAY (FIRST CYCLE FOR FIVE DAYS (HIGH-DOSE)
     Route: 065
     Dates: start: 201501
  3. TEMOZOLOMIDE. [Suspect]
     Active Substance: TEMOZOLOMIDE
     Indication: EWING^S SARCOMA METASTATIC
     Dosage: UNK
     Route: 065
     Dates: start: 2012
  4. IRINOTECAN [Suspect]
     Active Substance: IRINOTECAN
     Indication: EWING^S SARCOMA METASTATIC
     Dosage: UNK
     Route: 065
     Dates: start: 2012
  5. ETOPOSIDE. [Suspect]
     Active Substance: ETOPOSIDE
     Indication: EWING^S SARCOMA METASTATIC
     Dosage: UNK
     Route: 065
     Dates: start: 2012
  6. DACTINOMYCIN [Suspect]
     Active Substance: DACTINOMYCIN
     Indication: EWING^S SARCOMA METASTATIC
     Dosage: UNK
     Route: 065
     Dates: start: 2012
  7. CYCLOPHOSPHAMIDE. [Suspect]
     Active Substance: CYCLOPHOSPHAMIDE
     Indication: EWING^S SARCOMA METASTATIC
     Dosage: UNK
     Route: 065
     Dates: start: 2012

REACTIONS (1)
  - Tubulointerstitial nephritis [Recovering/Resolving]

NARRATIVE: CASE EVENT DATE: 201501
